FAERS Safety Report 9012852 (Version 2)
Quarter: 2013Q1

REPORT INFORMATION
  Report Type: Spontaneous
  Country: CA (occurrence: CA)
  Receive Date: 20130114
  Receipt Date: 20130123
  Transmission Date: 20140127
  Serious: Yes (Other)
  Sender: FDA-Public Use
  Company Number: PHHY2012CA124141

PATIENT
  Sex: Female

DRUGS (7)
  1. ACLASTA [Suspect]
     Indication: OSTEOPOROSIS
     Dosage: 5 MG, UNK
     Route: 042
     Dates: start: 20100116
  2. ACLASTA [Suspect]
     Dosage: 5 MG, UNK
     Route: 042
     Dates: start: 20120112
  3. ACLASTA [Suspect]
     Dosage: 5 MG, UNK
     Route: 042
     Dates: start: 20121212
  4. MAVIK [Concomitant]
     Dosage: 4 MG, UNK
  5. HYDROCHLOROTHIAZIDE [Concomitant]
     Dosage: 17.5 MG, UNK
  6. VENTOLIN                           /00942701/ [Concomitant]
  7. PULMICORT [Concomitant]

REACTIONS (6)
  - Raynaud^s phenomenon [Unknown]
  - Spinal fracture [Unknown]
  - Back pain [Unknown]
  - Cough [Unknown]
  - Pain in extremity [Unknown]
  - Arthralgia [Unknown]
